FAERS Safety Report 5989989-7 (Version None)
Quarter: 2008Q4

REPORT INFORMATION
  Report Type: 
  Country: None (occurrence: None)
  Receive Date: 20081211
  Receipt Date: 20081208
  Transmission Date: 20090506
  Serious: Yes (Hospitalization)
  Sender: FDA-Public Use
  Company Number: FR-SP-2008-03933

PATIENT
  Age: 82 Year
  Sex: Male

DRUGS (9)
  1. IMMUCYST [Suspect]
     Indication: BLADDER CANCER
     Dosage: 2/3 OF THE DOSE
     Route: 043
     Dates: start: 20080819, end: 20080826
  2. LASIX [Concomitant]
  3. PERINDOPRIL ERBUMINE [Concomitant]
  4. NITROGLYCERIN [Concomitant]
     Dosage: 1 PATCH/DAY
  5. COUMADINE (WARFARIN) [Concomitant]
  6. CORDARONE [Concomitant]
     Dosage: 1/DAY, 5 DAYS A WEEK
  7. FORADIL [Concomitant]
     Dosage: 2/DAY
  8. MIFLAZONE (BECLOMETASONE) [Concomitant]
     Dosage: 2/DAY
  9. BRICANYL TUBUHALER (TERBUTALIN) [Concomitant]
     Dosage: 1 PUFF AS NEEDED

REACTIONS (3)
  - HYPOTENSION [None]
  - LUNG DISORDER [None]
  - RESPIRATORY DISTRESS [None]
